FAERS Safety Report 21390672 (Version 1)
Quarter: 2022Q3

REPORT INFORMATION
  Report Type: Spontaneous
  Country: GB (occurrence: GB)
  Receive Date: 20220929
  Receipt Date: 20220929
  Transmission Date: 20221027
  Serious: Yes (Other)
  Sender: FDA-Public Use
  Company Number: None

PATIENT
  Sex: Female
  Weight: 105 kg

DRUGS (4)
  1. SERTRALINE [Suspect]
     Active Substance: SERTRALINE HYDROCHLORIDE
     Indication: Depression
  2. BACLOFEN [Concomitant]
     Active Substance: BACLOFEN
  3. HUMIRA [Concomitant]
     Active Substance: ADALIMUMAB
  4. TRAMADOL [Concomitant]
     Active Substance: TRAMADOL

REACTIONS (4)
  - Memory impairment [Not Recovered/Not Resolved]
  - Sinus headache [Not Recovered/Not Resolved]
  - Nasal congestion [Not Recovered/Not Resolved]
  - Heavy menstrual bleeding [Not Recovered/Not Resolved]

NARRATIVE: CASE EVENT DATE: 20200905
